FAERS Safety Report 20380840 (Version 5)
Quarter: 2022Q2

REPORT INFORMATION
  Report Type: Report from Study
  Country: TW (occurrence: None)
  Receive Date: 20220127
  Receipt Date: 20220425
  Transmission Date: 20220721
  Serious: Yes (Hospitalization)
  Sender: FDA-Public Use
  Company Number: TW-ROCHE-3007447

PATIENT
  Age: 46 Year
  Sex: Female
  Weight: 55 kg

DRUGS (10)
  1. ATEZOLIZUMAB [Suspect]
     Active Substance: ATEZOLIZUMAB
     Indication: Hepatocellular carcinoma
     Dosage: START DATE OF MOST RECENT DOSE OF STUDY DRUG PRIOR TO AE/SAE 03-JAN-2022 1200MG
     Route: 042
     Dates: start: 20220103
  2. ATEZOLIZUMAB [Suspect]
     Active Substance: ATEZOLIZUMAB
     Route: 042
     Dates: start: 20201130, end: 20211101
  3. BEVACIZUMAB [Suspect]
     Active Substance: BEVACIZUMAB
     Indication: Hepatocellular carcinoma
     Dosage: START DATE OF MOST RECENT DOSE OF STUDY DRUG PRIOR TO AE/SAE  03-JAN-2022 840 MG
     Route: 042
     Dates: start: 20220103
  4. BEVACIZUMAB [Suspect]
     Active Substance: BEVACIZUMAB
     Route: 042
     Dates: start: 20201130, end: 20211101
  5. CELECOXIB [Concomitant]
     Active Substance: CELECOXIB
     Indication: Procedural pain
     Dates: start: 20211220, end: 20211224
  6. FLUDIAZEPAM [Concomitant]
     Active Substance: FLUDIAZEPAM
     Indication: Anxiety
     Dates: start: 20211220, end: 20211225
  7. FLUDIAZEPAM [Concomitant]
     Active Substance: FLUDIAZEPAM
     Indication: Pain
  8. IBUPROFEN [Concomitant]
     Active Substance: IBUPROFEN
     Indication: Pyrexia
     Dates: start: 20220116, end: 20220118
  9. PFIZER-BIONTECH COVID-19 VACCINE [Concomitant]
     Active Substance: TOZINAMERAN
     Indication: COVID-19
     Dates: start: 20210927
  10. PFIZER-BIONTECH COVID-19 VACCINE [Concomitant]
     Active Substance: TOZINAMERAN
     Dates: start: 20211105

REACTIONS (1)
  - Febrile neutropenia [Recovered/Resolved]

NARRATIVE: CASE EVENT DATE: 20220119
